FAERS Safety Report 8465541-9 (Version None)
Quarter: 2012Q2

REPORT INFORMATION
  Report Type: 
  Country: None (occurrence: None)
  Receive Date: 20120626
  Receipt Date: 20120614
  Transmission Date: 20120825
  Serious: No
  Sender: FDA-Public Use
  Company Number: US-ASTRAZENECA-2012SE40058

PATIENT
  Sex: Female

DRUGS (4)
  1. ADVAIR DISKUS 100/50 [Concomitant]
  2. SYMBICORT [Suspect]
     Indication: ASTHMA
     Dosage: 2 INHALATIONS 160/4.5 BID
     Route: 055
  3. COMBIVENT [Concomitant]
  4. SINGULAIR [Concomitant]

REACTIONS (1)
  - CONDITION AGGRAVATED [None]
